FAERS Safety Report 11628259 (Version 1)
Quarter: 2015Q4

REPORT INFORMATION
  Report Type: Spontaneous
  Country: US (occurrence: None)
  Receive Date: 20151013
  Receipt Date: 20151013
  Transmission Date: 20160304
  Serious: No
  Sender: FDA-Public Use
  Company Number: None

PATIENT
  Age: 92 Year
  Sex: Male
  Weight: 81.65 kg

DRUGS (16)
  1. MAGNESIUM OXIDE 250 MG [Suspect]
     Active Substance: MAGNESIUM OXIDE
     Indication: ELECTROLYTE IMBALANCE
     Route: 048
     Dates: start: 201508
  2. CETIRIZINE [Concomitant]
     Active Substance: CETIRIZINE HYDROCHLORIDE
  3. ACETAMINOPHEN. [Concomitant]
     Active Substance: ACETAMINOPHEN
  4. ISOSORBIDE. [Concomitant]
     Active Substance: ISOSORBIDE
  5. SPIRIVA INHALER [Concomitant]
  6. TAMULOSIN [Concomitant]
     Active Substance: TAMSULOSIN
  7. ALBUTEROL INHALER [Concomitant]
     Active Substance: ALBUTEROL
  8. ASPIRIN. [Concomitant]
     Active Substance: ASPIRIN
  9. METOPROLOL [Concomitant]
     Active Substance: METOPROLOL
  10. METFORMIN [Concomitant]
     Active Substance: METFORMIN HYDROCHLORIDE
  11. ALBUTEROL NEBULIZER SOLUTION [Concomitant]
     Active Substance: ALBUTEROL
  12. POTASSIUM [Concomitant]
     Active Substance: POTASSIUM
  13. VITAMIN D [Concomitant]
     Active Substance: CHOLECALCIFEROL
  14. FINASTERIDE. [Concomitant]
     Active Substance: FINASTERIDE
  15. LORAZEPAM. [Concomitant]
     Active Substance: LORAZEPAM
  16. OMEPRAZOLE. [Concomitant]
     Active Substance: OMEPRAZOLE

REACTIONS (2)
  - Therapy change [None]
  - Diarrhoea [None]

NARRATIVE: CASE EVENT DATE: 201508
